FAERS Safety Report 8845192 (Version 2)
Quarter: 2013Q1

REPORT INFORMATION
  Report Type: Spontaneous
  Country: US (occurrence: US)
  Receive Date: 20121017
  Receipt Date: 20130320
  Transmission Date: 20140127
  Serious: No
  Sender: FDA-Public Use
  Company Number: US-009507513-1209USA007596

PATIENT
  Sex: Male
  Weight: 87.75 kg

DRUGS (4)
  1. VICTRELIS [Suspect]
     Indication: CHRONIC HEPATITIS
     Dosage: 800 MG, TID
     Route: 048
     Dates: start: 20120831
  2. ALBUTEROL SULFATE [Concomitant]
  3. ACETAMINOPHEN (+) OXYCODONE HYDROCHLORIDE [Concomitant]
     Dosage: 7.5-325
     Route: 048
  4. FLURAZEPAM HYDROCHLORIDE [Concomitant]
     Dosage: 15 MG
     Route: 048

REACTIONS (1)
  - Vision blurred [Recovered/Resolved]
